FAERS Safety Report 9201688 (Version 2)
Quarter: 2013Q2

REPORT INFORMATION
  Report Type: Report from Study
  Country: AU (occurrence: AU)
  Receive Date: 20130401
  Receipt Date: 20130528
  Transmission Date: 20140414
  Serious: Yes (Hospitalization)
  Sender: FDA-Public Use
  Company Number: PHHY2013AU030351

PATIENT
  Age: 71 Year
  Sex: Male

DRUGS (27)
  1. ACLASTA [Suspect]
     Indication: OSTEOPOROSIS
     Dosage: UNK
     Route: 042
     Dates: start: 20110314
  2. ACLASTA [Suspect]
     Dosage: UNK
     Route: 042
     Dates: start: 20120220
  3. ACIMAX [Concomitant]
     Route: 048
  4. DOCUSATE SODIUM\SENNOSIDES [Concomitant]
     Dosage: UNK UKN, UNK
  5. DIABEX [Concomitant]
  6. EFEXOR XR [Concomitant]
  7. FERRO F [Concomitant]
     Dosage: 350 UG, UNK
  8. FERRUM H [Concomitant]
  9. FLOPEN [Concomitant]
     Dosage: UNK UKN, UNK
  10. JANUMET [Concomitant]
     Dosage: 1000 MG, UNK
  11. JANUVIA [Concomitant]
  12. KLACID                                  /IRE/ [Concomitant]
  13. LASIX [Concomitant]
  14. LIPITOR [Concomitant]
  15. MAGMIN [Concomitant]
  16. MOBIC [Concomitant]
  17. OSTELIN VITAMIN D + CALCIUM [Concomitant]
     Dosage: 1500 MG, UNK
  18. PANADEINE FORTE [Concomitant]
     Dosage: 30 MG, UNK
  19. PANADOL OSTEO [Concomitant]
  20. PHOLCODINE [Concomitant]
     Dosage: 5 ML, UNK
  21. PLAVIX [Concomitant]
  22. ROXIMYCIN//DOXYCYCLINE HYDROCHLORIDE [Concomitant]
  23. SERETIDE MDI [Concomitant]
     Dosage: 25 UG, UNK
  24. SPIRACTIN//PIMECLONE HYDROCHLORIDE [Concomitant]
     Dosage: 25 MG, UNK
  25. SPIRIVA [Concomitant]
  26. THIAMINE [Concomitant]
  27. VENTOLIN                           /00942701/ [Concomitant]

REACTIONS (5)
  - Rib fracture [Not Recovered/Not Resolved]
  - Thoracic vertebral fracture [Not Recovered/Not Resolved]
  - Injury [Not Recovered/Not Resolved]
  - Fall [Not Recovered/Not Resolved]
  - Pain [Not Recovered/Not Resolved]
